FAERS Safety Report 18820477 (Version 1)
Quarter: 2021Q1

REPORT INFORMATION
  Report Type: Spontaneous
  Country: US (occurrence: US)
  Receive Date: 20210202
  Receipt Date: 20210202
  Transmission Date: 20210419
  Serious: Yes (Hospitalization)
  Sender: FDA-Public Use
  Company Number: US-ROCHE-2760305

PATIENT
  Sex: Male

DRUGS (9)
  1. TYLENOL [Concomitant]
     Active Substance: ACETAMINOPHEN
  2. ATORVASTATIN [Concomitant]
     Active Substance: ATORVASTATIN
  3. METOPROLOL TARTRATE. [Concomitant]
     Active Substance: METOPROLOL TARTRATE
  4. ESBRIET [Suspect]
     Active Substance: PIRFENIDONE
     Indication: IDIOPATHIC PULMONARY FIBROSIS
     Dosage: TAKE 1 TABLET BY MOUTH THREE TIMES DAILY FOR ONE WEEK, THEN 2 TABLETS BY MOUTH THREE TIMES DAILY FOR
     Route: 048
     Dates: start: 20170208
  5. PIOGLITAZONE. [Concomitant]
     Active Substance: PIOGLITAZONE
  6. FUROSEMIDE. [Concomitant]
     Active Substance: FUROSEMIDE
  7. GLIPIZIDE. [Concomitant]
     Active Substance: GLIPIZIDE
  8. ASPIRIN. [Concomitant]
     Active Substance: ASPIRIN
  9. VALSARTAN. [Concomitant]
     Active Substance: VALSARTAN

REACTIONS (1)
  - Palpitations [Unknown]
